FAERS Safety Report 24120403 (Version 1)
Quarter: 2024Q3

REPORT INFORMATION
  Report Type: Spontaneous
  Country: US (occurrence: US)
  Receive Date: 20240722
  Receipt Date: 20240722
  Transmission Date: 20241017
  Serious: No
  Sender: PFIZER
  Company Number: US-PFIZER INC-202400216422

PATIENT
  Age: 61 Year
  Sex: Female
  Weight: 95.25 kg

DRUGS (1)
  1. XELJANZ [Suspect]
     Active Substance: TOFACITINIB CITRATE
     Indication: Rheumatoid arthritis
     Dosage: 1 TABLET IN MORNING AND 1 TABLET AT NIGHT
     Dates: start: 20240313, end: 20240715

REACTIONS (6)
  - Rash macular [Unknown]
  - Blister [Unknown]
  - Blister rupture [Unknown]
  - Blood blister [Unknown]
  - Erythema [Unknown]
  - Contusion [Unknown]

NARRATIVE: CASE EVENT DATE: 20240101
